FAERS Safety Report 10422338 (Version 3)
Quarter: 2014Q3

REPORT INFORMATION
  Report Type: Report from Study
  Country: NL (occurrence: NL)
  Receive Date: 20140901
  Receipt Date: 20140924
  Transmission Date: 20150326
  Serious: Yes (Death, Life-Threatening, Hospitalization, Other)
  Sender: FDA-Public Use
  Company Number: NL-ASTRAZENECA-2014SE26150

PATIENT
  Age: 63 Year
  Sex: Male

DRUGS (14)
  1. OXYNORM [Concomitant]
     Active Substance: OXYCODONE HYDROCHLORIDE
     Dates: end: 20140115
  2. COLCHICINE. [Concomitant]
     Active Substance: COLCHICINE
     Dosage: WHEN NECESSARY
  3. ESOMEPRAZOLE [Concomitant]
     Active Substance: ESOMEPRAZOLE
  4. TICAGRELOR [Suspect]
     Active Substance: TICAGRELOR
     Indication: THROMBOSIS PROPHYLAXIS
     Route: 048
     Dates: start: 20131210
  5. FENTANYL. [Concomitant]
     Active Substance: FENTANYL
     Dates: end: 20140115
  6. BURINEX [Concomitant]
     Active Substance: BUMETANIDE
  7. PCM [Concomitant]
     Dates: end: 20140115
  8. PLAVIX [Concomitant]
     Active Substance: CLOPIDOGREL BISULFATE
  9. PREDNISOLONE. [Concomitant]
     Active Substance: PREDNISOLONE
  10. ASPIRIN (NON-AZ PRODUCT) [Suspect]
     Active Substance: ASPIRIN
     Indication: THROMBOSIS PROPHYLAXIS
     Route: 048
  11. METOPROLOL [Concomitant]
     Active Substance: METOPROLOL
  12. MYCOPHENOLATE [Concomitant]
     Active Substance: MYCOPHENOLIC ACID
  13. MOVICOLON [Concomitant]
     Active Substance: POLYETHYLENE GLYCOL 3350\POTASSIUM CHLORIDE\SODIUM BICARBONATE\SODIUM CHLORIDE
     Dates: end: 20140115
  14. ATORVASTATIN [Concomitant]
     Active Substance: ATORVASTATIN

REACTIONS (3)
  - Urosepsis [Fatal]
  - Abdominal wall haematoma [Fatal]
  - Metastatic carcinoma of the bladder [Fatal]

NARRATIVE: CASE EVENT DATE: 20140104
